FAERS Safety Report 19178701 (Version 1)
Quarter: 2021Q2

REPORT INFORMATION
  Report Type: Spontaneous
  Country: ES (occurrence: ES)
  Receive Date: 20210426
  Receipt Date: 20210426
  Transmission Date: 20210717
  Serious: Yes (Other)
  Sender: FDA-Public Use
  Company Number: NVSC2021ES089777

PATIENT
  Age: 15 Year
  Sex: Female

DRUGS (12)
  1. RIFAMPICIN [Suspect]
     Active Substance: RIFAMPIN
     Indication: DISSEMINATED TUBERCULOSIS
     Dosage: UNK
     Route: 065
  2. MOXIFLOXACIN. [Suspect]
     Active Substance: MOXIFLOXACIN
     Indication: TUBERCULOSIS OF CENTRAL NERVOUS SYSTEM
     Dosage: UNK
     Route: 065
  3. ISONIAZID. [Suspect]
     Active Substance: ISONIAZID
     Indication: TUBERCULOSIS OF CENTRAL NERVOUS SYSTEM
     Dosage: UNK
     Route: 065
  4. AMIKACIN. [Suspect]
     Active Substance: AMIKACIN
     Indication: DISSEMINATED TUBERCULOSIS
     Dosage: UNK
     Route: 065
  5. ETHAMBUTOL [Suspect]
     Active Substance: ETHAMBUTOL HYDROCHLORIDE
     Indication: TUBERCULOSIS OF CENTRAL NERVOUS SYSTEM
  6. ISONIAZID. [Suspect]
     Active Substance: ISONIAZID
     Indication: DISSEMINATED TUBERCULOSIS
     Dosage: UNK
     Route: 065
  7. PYRAZINAMIDE. [Suspect]
     Active Substance: PYRAZINAMIDE
     Indication: TUBERCULOSIS OF CENTRAL NERVOUS SYSTEM
  8. AMIKACIN. [Suspect]
     Active Substance: AMIKACIN
     Indication: TUBERCULOSIS OF CENTRAL NERVOUS SYSTEM
  9. MOXIFLOXACIN. [Suspect]
     Active Substance: MOXIFLOXACIN
     Indication: DISSEMINATED TUBERCULOSIS
     Dosage: UNK
     Route: 065
  10. RIFAMPICIN [Suspect]
     Active Substance: RIFAMPIN
     Indication: TUBERCULOSIS OF CENTRAL NERVOUS SYSTEM
     Dosage: UNK
     Route: 065
  11. PYRAZINAMIDE. [Suspect]
     Active Substance: PYRAZINAMIDE
     Indication: DISSEMINATED TUBERCULOSIS
     Route: 065
  12. ETHAMBUTOL [Suspect]
     Active Substance: ETHAMBUTOL HYDROCHLORIDE
     Indication: DISSEMINATED TUBERCULOSIS
     Dosage: UNK
     Route: 065

REACTIONS (3)
  - Product use in unapproved indication [Unknown]
  - Hepatitis [Unknown]
  - Hypoacusis [Recovered/Resolved]
